FAERS Safety Report 9011622 (Version 1)
Quarter: 2013Q1

REPORT INFORMATION
  Report Type: Spontaneous
  Country: US (occurrence: US)
  Receive Date: 20130108
  Receipt Date: 20130108
  Transmission Date: 20140127
  Serious: Yes (Death)
  Sender: FDA-Public Use
  Company Number: US-ASTRAZENECA-2013SE00897

PATIENT
  Age: 22 Year
  Sex: Male

DRUGS (8)
  1. FENTANYL [Suspect]
  2. METOPROLOL [Suspect]
  3. QUETIAPINE [Suspect]
  4. ZOLPIDEM [Suspect]
  5. ETHANOL [Suspect]
  6. TRAZODONE [Suspect]
  7. DIAZEPAM [Suspect]
  8. FLUOXETINE [Suspect]

REACTIONS (2)
  - Drug abuse [Fatal]
  - Toxicity to various agents [Fatal]
